FAERS Safety Report 24818013 (Version 2)
Quarter: 2025Q3

REPORT INFORMATION
  Report Type: Spontaneous
  Country: EU (occurrence: EU)
  Receive Date: 20250108
  Receipt Date: 20250723
  Transmission Date: 20251021
  Serious: No
  Sender: SANDOZ
  Company Number: EU-SANDOZ-SDZ2025FR000877

PATIENT
  Age: 11 Year
  Sex: Male

DRUGS (1)
  1. OMNITROPE [Suspect]
     Active Substance: SOMATROPIN
     Indication: Cytogenetic abnormality
     Dosage: 1 MG, QD, 10 MG/1.5 ML, SOLUTION FOR INJECTION
     Route: 065

REACTIONS (1)
  - Drug dose omission by device [Unknown]
